FAERS Safety Report 13738789 (Version 1)
Quarter: 2017Q3

REPORT INFORMATION
  Report Type: Report from Study
  Country: US (occurrence: US)
  Receive Date: 20170710
  Receipt Date: 20170710
  Transmission Date: 20171127
  Serious: Yes (Other)
  Sender: FDA-Public Use
  Company Number: US-SAOL THERAPEUTICS-2017SAO00641

PATIENT
  Age: 26 Year
  Sex: Male
  Weight: 68.93 kg

DRUGS (6)
  1. COMPOUNDED BACLOFEN [Suspect]
     Active Substance: BACLOFEN
     Dosage: 39.98 ?G, \DAY
     Route: 037
     Dates: start: 20160915
  2. CLONIDINE. [Suspect]
     Active Substance: CLONIDINE
     Dosage: 172.84 ?G, \DAY
     Route: 037
     Dates: start: 20160915
  3. COMPOUNDED BACLOFEN [Suspect]
     Active Substance: BACLOFEN
     Dosage: 69.13 ?G, \DAY
     Route: 037
  4. BUPIVICANE [Suspect]
     Active Substance: BUPIVACAINE
     Dosage: 11.993 MG, \DAY
     Route: 037
     Dates: start: 20160915
  5. BUPIVICANE [Suspect]
     Active Substance: BUPIVACAINE
     Dosage: 20.740 MG, \DAY
     Route: 037
     Dates: start: 20160915
  6. CLONIDINE. [Suspect]
     Active Substance: CLONIDINE
     Dosage: 99.94 ?G, \DAY
     Route: 037
     Dates: start: 20160915

REACTIONS (1)
  - Cerebrospinal fluid leakage [Unknown]

NARRATIVE: CASE EVENT DATE: 20161030
